FAERS Safety Report 12922149 (Version 2)
Quarter: 2016Q4

REPORT INFORMATION
  Report Type: Report from Study
  Country: AU (occurrence: AU)
  Receive Date: 20161108
  Receipt Date: 20161123
  Transmission Date: 20170207
  Serious: Yes (Hospitalization)
  Sender: FDA-Public Use
  Company Number: AU-GILEAD-2016-0241866

PATIENT
  Age: 43 Year
  Sex: Male
  Weight: 70 kg

DRUGS (4)
  1. SOFOSBUVIR W/VELPATASVIR [Suspect]
     Active Substance: SOFOSBUVIR\VELPATASVIR
     Indication: CHRONIC HEPATITIS C
     Dosage: 1 DF, QD
     Route: 048
     Dates: start: 20160927
  2. CLINDAMYCIN. [Suspect]
     Active Substance: CLINDAMYCIN
     Indication: PRODUCT USED FOR UNKNOWN INDICATION
     Route: 065
  3. STELARA [Concomitant]
     Active Substance: USTEKINUMAB
     Indication: PSORIASIS
  4. VENTOLIN [Concomitant]
     Active Substance: ALBUTEROL SULFATE

REACTIONS (1)
  - Dermatitis exfoliative [Recovered/Resolved]

NARRATIVE: CASE EVENT DATE: 20161101
